FAERS Safety Report 5992642-7 (Version None)
Quarter: 2008Q4

REPORT INFORMATION
  Report Type: 
  Country: None (occurrence: None)
  Receive Date: 20081202
  Receipt Date: 20071018
  Transmission Date: 20090506
  Serious: Yes (Other)
  Sender: FDA-Public Use
  Company Number: WAES 0708USA02372

PATIENT
  Age: 93 Year
  Sex: Female
  Weight: 54.8852 kg

DRUGS (7)
  1. FOSAMAX [Suspect]
     Indication: OSTEOPOROSIS
     Dosage: PO
     Route: 048
     Dates: start: 20000201, end: 20010801
  2. FOSAMAX [Suspect]
     Indication: OSTEOPOROSIS
     Dosage: PO
     Route: 048
     Dates: start: 20010801, end: 20070901
  3. BENICAR [Concomitant]
  4. CLARITIN [Concomitant]
  5. LEVOXYL [Concomitant]
  6. MIRALAX [Concomitant]
  7. SINGULAIR [Concomitant]

REACTIONS (1)
  - OSTEONECROSIS [None]
